FAERS Safety Report 6910455-6 (Version None)
Quarter: 2010Q3

REPORT INFORMATION
  Report Type: 
  Country: None (occurrence: None)
  Receive Date: 20100806
  Receipt Date: 20100726
  Transmission Date: 20110219
  Serious: Yes (Life-Threatening)
  Sender: FDA-Public Use
  Company Number: JP-JNJFOC-20100708351

PATIENT
  Sex: Female
  Weight: 78 kg

DRUGS (9)
  1. REMICADE [Suspect]
     Indication: RHEUMATOID ARTHRITIS
     Dosage: 24TH INFUSION
     Route: 042
  2. REMICADE [Suspect]
     Dosage: 23 INFUSIONS AT 3 MG/KG
     Route: 042
  3. METOLATE [Suspect]
     Indication: RHEUMATOID ARTHRITIS
     Route: 048
  4. FOLIAMIN [Suspect]
     Indication: RHEUMATOID ARTHRITIS
     Route: 048
  5. MOBIC [Suspect]
     Indication: RHEUMATOID ARTHRITIS
     Route: 048
  6. MUCOSTA [Suspect]
     Indication: GASTRITIS
     Route: 048
  7. AZULFIDINE [Suspect]
     Indication: RHEUMATOID ARTHRITIS
     Route: 048
  8. PREDONINE [Suspect]
     Indication: RHEUMATOID ARTHRITIS
     Route: 048
  9. MINOCYCLINE HCL [Suspect]
     Indication: RHEUMATOID ARTHRITIS
     Route: 048

REACTIONS (2)
  - INTRACRANIAL ANEURYSM [None]
  - SUBARACHNOID HAEMORRHAGE [None]
